FAERS Safety Report 5833518-5 (Version None)
Quarter: 2008Q3

REPORT INFORMATION
  Report Type: 
  Country: None (occurrence: None)
  Receive Date: 20080805
  Receipt Date: 20080725
  Transmission Date: 20090109
  Serious: Yes (Hospitalization)
  Sender: FDA-Public Use
  Company Number: US-SOLVAY-00208003328

PATIENT
  Age: 81 Year
  Sex: Male
  Weight: 54.5 kg

DRUGS (7)
  1. STATIN [Concomitant]
     Indication: BLOOD CHOLESTEROL INCREASED
     Dosage: DAILY DOSE:  UNKNOWN
     Route: 048
  2. CREON [Suspect]
     Indication: PANCREATIC NEOPLASM
     Dosage: DAILY DOSE:  2 CAPSULES AT EVERY MEAL
     Route: 048
     Dates: start: 20040101, end: 20080714
  3. CREON [Suspect]
     Dosage: DAILY DOSE: 4 CAPSULES AT EVERY MEAL AND 2 CAPSULES WITH SNACKS
     Route: 048
     Dates: start: 20080717
  4. SINGULAIR [Concomitant]
     Indication: NASAL DISORDER
     Dosage: DAILY DOSE:  UNKNOWN
     Route: 048
  5. OMEPRAZOLE [Concomitant]
     Indication: GASTROOESOPHAGEAL REFLUX DISEASE
     Dosage: DAILY DOSE:  UNKNOWN
     Route: 048
  6. THYROID TAB [Concomitant]
     Indication: HYPOTHYROIDISM
     Dosage: DAILY DOSE:  UNKNOWN
     Route: 048
  7. NIFEDIPINE [Concomitant]
     Indication: HYPERTENSION
     Dosage: DAILY DOSE:  UNKNOWN
     Route: 048

REACTIONS (3)
  - DIARRHOEA [None]
  - INVESTIGATION [None]
  - WEIGHT GAIN POOR [None]
